FAERS Safety Report 8378852-2 (Version None)
Quarter: 2012Q2

REPORT INFORMATION
  Report Type: 
  Country: None (occurrence: None)
  Receive Date: 20120523
  Receipt Date: 20120515
  Transmission Date: 20120825
  Serious: Yes (Other)
  Sender: FDA-Public Use
  Company Number: IT-BRISTOL-MYERS SQUIBB COMPANY-16520363

PATIENT
  Age: 34 Year
  Sex: Male

DRUGS (4)
  1. BLEOMYCIN SULFATE [Suspect]
     Indication: TESTICULAR GERM CELL CANCER
     Route: 042
     Dates: start: 20120224
  2. VEPESID [Suspect]
     Indication: TESTICULAR GERM CELL CANCER
     Route: 042
     Dates: start: 20120224
  3. METOCLOPRAMIDE HYDROCHLORIDE [Concomitant]
  4. CISPLATIN [Suspect]
     Route: 042
     Dates: start: 20120224

REACTIONS (4)
  - NEUTROPENIA [None]
  - TINNITUS [None]
  - NAUSEA [None]
  - VOMITING [None]
